FAERS Safety Report 20146736 (Version 5)
Quarter: 2022Q4

REPORT INFORMATION
  Report Type: Spontaneous
  Country: US (occurrence: US)
  Receive Date: 20211203
  Receipt Date: 20221028
  Transmission Date: 20230113
  Serious: No
  Sender: FDA-Public Use
  Company Number: US-PFIZER INC-2021903062

PATIENT
  Age: 75 Year
  Sex: Female
  Weight: 79.38 kg

DRUGS (2)
  1. TOVIAZ [Suspect]
     Active Substance: FESOTERODINE FUMARATE
     Indication: Incontinence
     Dosage: 8 MG, 1X/DAY
  2. TOVIAZ [Suspect]
     Active Substance: FESOTERODINE FUMARATE
     Dosage: 4 MG, 2X/DAY (4MG TWICE A DAY BY MOUTH)
     Route: 048
     Dates: start: 2021

REACTIONS (8)
  - Drug ineffective [Unknown]
  - Off label use [Unknown]
  - Feeling abnormal [Unknown]
  - COVID-19 [Unknown]
  - Bronchial hyperreactivity [Not Recovered/Not Resolved]
  - Condition aggravated [Not Recovered/Not Resolved]
  - Illness [Unknown]
  - Dysphonia [Unknown]

NARRATIVE: CASE EVENT DATE: 20210101
